FAERS Safety Report 13393647 (Version 1)
Quarter: 2017Q1

REPORT INFORMATION
  Report Type: Report from Study
  Country: None (occurrence: AT)
  Receive Date: 20170331
  Receipt Date: 20170331
  Transmission Date: 20170429
  Serious: Yes (Death)
  Sender: FDA-Public Use
  Company Number: AT-ABBVIE-17P-009-1839939-00

PATIENT
  Age: 73 Year
  Sex: Male

DRUGS (1)
  1. DUODOPA [Suspect]
     Active Substance: CARBIDOPA\LEVODOPA
     Indication: PARKINSON^S DISEASE
     Dosage: 24HRS THERAPY: MD: 5.0, CRD: 5.8, CRN: 3.0, ED: 3.0
     Route: 050
     Dates: start: 20111012

REACTIONS (3)
  - General physical health deterioration [Not Recovered/Not Resolved]
  - Death [Fatal]
  - Somnolence [Not Recovered/Not Resolved]

NARRATIVE: CASE EVENT DATE: 201701
